FAERS Safety Report 6317416-9 (Version None)
Quarter: 2009Q3

REPORT INFORMATION
  Report Type: 
  Country: None (occurrence: None)
  Receive Date: 20090820
  Receipt Date: 20090820
  Transmission Date: 20100115
  Serious: No
  Sender: FDA-Public Use
  Company Number: None

PATIENT
  Sex: Female
  Weight: 54.4316 kg

DRUGS (1)
  1. BONIVA [Suspect]
     Indication: RESORPTION BONE INCREASED
     Dosage: 1 TABLET ONCE A MONTH
     Dates: start: 20090809

REACTIONS (6)
  - BONE PAIN [None]
  - CHEST PAIN [None]
  - DISCOMFORT [None]
  - DIZZINESS [None]
  - HEADACHE [None]
  - TOOTH DISORDER [None]
